FAERS Safety Report 7289390-2 (Version None)
Quarter: 2011Q1

REPORT INFORMATION
  Report Type: 
  Country: None (occurrence: None)
  Receive Date: 20110211
  Receipt Date: 20110204
  Transmission Date: 20110831
  Serious: Yes (Hospitalization)
  Sender: FDA-Public Use
  Company Number: FR-PFIZER INC-2011026617

PATIENT
  Age: 77 Year
  Sex: Male

DRUGS (5)
  1. AMBROXOL [Concomitant]
     Dosage: UNK
  2. ZOLADEX [Concomitant]
     Dosage: UNK
  3. MULTAQ [Interacting]
     Indication: ATRIAL FIBRILLATION
     Dosage: UNK
     Dates: start: 20101130
  4. TAHOR [Suspect]
     Dosage: UNK
  5. ANDROCUR [Interacting]
     Dosage: UNK

REACTIONS (4)
  - DRUG INTERACTION [None]
  - CHOLESTASIS [None]
  - RENAL FAILURE [None]
  - CYTOLYTIC HEPATITIS [None]
